FAERS Safety Report 4808789-4 (Version None)
Quarter: 2005Q4

REPORT INFORMATION
  Report Type: 
  Country: None (occurrence: None)
  Receive Date: 20051025
  Receipt Date: 20021014
  Transmission Date: 20060501
  Serious: Yes (Hospitalization)
  Sender: FDA-Public Use
  Company Number: US-MERCK-0210USA01510

PATIENT
  Age: 84 Year
  Sex: Female
  Weight: 62 kg

DRUGS (7)
  1. VIOXX [Suspect]
     Indication: OSTEOARTHRITIS
     Route: 048
     Dates: start: 20000101
  2. VIOXX [Suspect]
     Route: 048
     Dates: start: 20000101
  3. COUMADIN [Concomitant]
     Indication: THROMBOSIS
     Route: 065
     Dates: start: 19990101
  4. PREMARIN [Concomitant]
     Route: 065
     Dates: end: 20030212
  5. EXELON [Concomitant]
     Indication: DEMENTIA
     Route: 065
  6. EXELON [Concomitant]
     Indication: AMNESIA
     Route: 065
  7. OS-CAL [Concomitant]
     Indication: OSTEOPOROSIS
     Route: 065

REACTIONS (17)
  - ATRIAL FIBRILLATION [None]
  - BLOOD CHOLESTEROL INCREASED [None]
  - CHOLELITHIASIS [None]
  - CHRONIC FATIGUE SYNDROME [None]
  - DEHYDRATION [None]
  - DEPRESSION [None]
  - DIARRHOEA [None]
  - HYPERTENSION [None]
  - INJURY [None]
  - MACULAR DEGENERATION [None]
  - PAIN [None]
  - RENAL FAILURE ACUTE [None]
  - SLEEP APNOEA SYNDROME [None]
  - SPINAL OSTEOARTHRITIS [None]
  - SYNCOPE [None]
  - TRANSIENT ISCHAEMIC ATTACK [None]
  - URINARY TRACT INFECTION [None]
